FAERS Safety Report 6878987-7 (Version None)
Quarter: 2010Q3

REPORT INFORMATION
  Report Type: 
  Country: None (occurrence: None)
  Receive Date: 20100728
  Receipt Date: 20100701
  Transmission Date: 20110219
  Serious: No
  Sender: FDA-Public Use
  Company Number: US-BAYER-201026350NA

PATIENT
  Sex: Female

DRUGS (1)
  1. ADALAT [Suspect]
     Indication: PRODUCT USED FOR UNKNOWN INDICATION
     Dosage: TOTAL DAILY DOSE: 60 MG  UNIT DOSE: 30 MG

REACTIONS (1)
  - DRUG INEFFECTIVE [None]
